FAERS Safety Report 25891009 (Version 3)
Quarter: 2025Q4

REPORT INFORMATION
  Report Type: Report from Study
  Country: US (occurrence: US)
  Receive Date: 20251007
  Receipt Date: 20251216
  Transmission Date: 20260118
  Serious: Yes (Disabling, Other)
  Sender: ALEXION PHARMACEUTICALS
  Company Number: US-AstraZeneca-CH-00962993A

PATIENT
  Sex: Female

DRUGS (1)
  1. RAVULIZUMAB [Suspect]
     Active Substance: RAVULIZUMAB
     Route: 065

REACTIONS (8)
  - Disability [Unknown]
  - Illness [Unknown]
  - Asthenia [Unknown]
  - Dysstasia [Unknown]
  - Illness [Unknown]
  - Nausea [Unknown]
  - Impaired work ability [Unknown]
  - Eating disorder [Unknown]
